FAERS Safety Report 8544388 (Version 3)
Quarter: 2013Q4

REPORT INFORMATION
  Report Type: Spontaneous
  Country: US (occurrence: None)
  Receive Date: 20120315
  Receipt Date: 20131226
  Transmission Date: 20140711
  Serious: Yes (Other)
  Sender: FDA-Public Use
  Company Number: PHHY2011US12955

PATIENT
  Age: 51 Year
  Sex: Female

DRUGS (4)
  1. GILENYA [Suspect]
     Indication: MULTIPLE SCLEROSIS
     Dosage: 0.5 MG, BID, ORAL
     Route: 048
     Dates: start: 20110204
  2. DIAZEPAM (DIAZEPAM) [Concomitant]
  3. GABAPENTIN (GABAPENTIN) [Concomitant]
  4. LEVOTHYROXINE SODIUM [Concomitant]

REACTIONS (9)
  - Bradycardia [None]
  - Incorrect dose administered [None]
  - Visual impairment [None]
  - Nausea [None]
  - Dyspepsia [None]
  - Dizziness [None]
  - Headache [None]
  - Overdose [None]
  - Vomiting [None]
